FAERS Safety Report 9656210 (Version 1)
Quarter: 2013Q4

REPORT INFORMATION
  Report Type: Spontaneous
  Country: US (occurrence: US)
  Receive Date: 20131030
  Receipt Date: 20131030
  Transmission Date: 20140711
  Serious: No
  Sender: FDA-Public Use
  Company Number: US-009507513-1310USA013779

PATIENT
  Sex: Male

DRUGS (2)
  1. MIRALAX [Suspect]
     Indication: COLONOSCOPY
     Dosage: UNK, UNKNOWN
     Route: 048
     Dates: start: 201310
  2. MIRALAX [Suspect]
     Dosage: UNK, UNKNOWN
     Route: 048

REACTIONS (3)
  - Therapeutic response unexpected [Unknown]
  - Drug ineffective [Unknown]
  - Off label use [Unknown]
